FAERS Safety Report 4682687-1 (Version None)
Quarter: 2005Q2

REPORT INFORMATION
  Report Type: 
  Country: None (occurrence: None)
  Receive Date: 20050606
  Receipt Date: 20050525
  Transmission Date: 20051028
  Serious: Yes (Other)
  Sender: FDA-Public Use
  Company Number: AT-GLAXOSMITHKLINE-B0383385A

PATIENT
  Sex: Female

DRUGS (7)
  1. AVANDIA [Suspect]
     Indication: DIABETES MELLITUS
     Dosage: 8MG PER DAY
     Route: 048
     Dates: start: 20031201
  2. BEZAFIBRATE [Concomitant]
  3. TOLVON [Concomitant]
  4. CITALOPRAM [Concomitant]
  5. BLOPRESS [Concomitant]
  6. GLUCOPHAGE [Concomitant]
     Dosage: 2000MG PER DAY
  7. NOVONORM [Concomitant]

REACTIONS (4)
  - ANAEMIA [None]
  - CUSHING'S SYNDROME [None]
  - LOCAL SWELLING [None]
  - SWELLING FACE [None]
